FAERS Safety Report 6083485-7 (Version None)
Quarter: 2009Q1

REPORT INFORMATION
  Report Type: 
  Country: None (occurrence: None)
  Receive Date: 20090213
  Receipt Date: 20090213
  Transmission Date: 20090719
  Serious: Yes (Life-Threatening, Other)
  Sender: FDA-Public Use
  Company Number: None

PATIENT
  Age: 19 Year
  Sex: Male
  Weight: 74.8435 kg

DRUGS (2)
  1. VICKS DAYQUIL LIQUI CAPS [Suspect]
     Indication: COUGH
  2. VICKS DAYQUIL LIQUI CAPS [Suspect]
     Indication: NASOPHARYNGITIS

REACTIONS (2)
  - CHOKING [None]
  - PRODUCT QUALITY ISSUE [None]
